FAERS Safety Report 12694213 (Version 1)
Quarter: 2016Q3

REPORT INFORMATION
  Report Type: Report from Study
  Country: US (occurrence: US)
  Receive Date: 20160829
  Receipt Date: 20160829
  Transmission Date: 20161109
  Serious: Yes (Hospitalization)
  Sender: FDA-Public Use
  Company Number: US-GILEAD-2016-0230789

PATIENT
  Age: 68 Year
  Sex: Female

DRUGS (1)
  1. AMBRISENTAN [Suspect]
     Active Substance: AMBRISENTAN
     Indication: PRODUCT USED FOR UNKNOWN INDICATION
     Dosage: 10 MG, QD
     Route: 065
     Dates: start: 20130509

REACTIONS (6)
  - Upper respiratory tract infection [Unknown]
  - Sinusitis [Unknown]
  - Tympanic membrane perforation [Unknown]
  - Fall [Unknown]
  - Eye injury [Unknown]
  - Concussion [Unknown]
